FAERS Safety Report 14844918 (Version 4)
Quarter: 2018Q3

REPORT INFORMATION
  Report Type: Spontaneous
  Country: IE (occurrence: IE)
  Receive Date: 20180504
  Receipt Date: 20180824
  Transmission Date: 20181010
  Serious: Yes (Disabling)
  Sender: FDA-Public Use
  Company Number: IE-009507513-1805IRL001564

PATIENT
  Age: 34 Year
  Sex: Male

DRUGS (1)
  1. ELOCON [Suspect]
     Active Substance: MOMETASONE FUROATE
     Indication: LICHEN PLANUS
     Dosage: UNK
     Route: 061
     Dates: start: 20171202

REACTIONS (5)
  - Pain [Not Recovered/Not Resolved]
  - Genital erythema [Not Recovered/Not Resolved]
  - Skin irritation [Not Recovered/Not Resolved]
  - Skin burning sensation [Not Recovered/Not Resolved]
  - Pruritus genital [Not Recovered/Not Resolved]

NARRATIVE: CASE EVENT DATE: 20171202
